FAERS Safety Report 7967947-0 (Version None)
Quarter: 2011Q4

REPORT INFORMATION
  Report Type: 
  Country: None (occurrence: None)
  Receive Date: 20111208
  Receipt Date: 20111208
  Transmission Date: 20120403
  Serious: Yes (Hospitalization)
  Sender: FDA-Public Use
  Company Number: None

PATIENT
  Sex: Female
  Weight: 70.9 kg

DRUGS (16)
  1. OMEPRAZOLE [Concomitant]
  2. ALBUTEROL INHALER [Concomitant]
  3. UREA CREAM [Concomitant]
  4. WARFARIN SODIUM [Concomitant]
  5. LORAZEPAM [Concomitant]
  6. MIRALAX [Concomitant]
  7. OXYCODONE HCL [Concomitant]
  8. TYLENOL W/ CODEINE NO. 3 [Concomitant]
  9. AMLODIPINE [Concomitant]
  10. CLOBETASOL PROPIONATE [Concomitant]
  11. LEVOTHYROXINE SODIUM [Concomitant]
  12. LOSARTAN POTASSIUM [Concomitant]
  13. BENZONATATE [Concomitant]
  14. SORAFENIB 400 MG BID THEN DAILY PO [Suspect]
     Indication: NON-SMALL CELL LUNG CANCER
     Dosage: SORAFENIB 400 MG BID THEN DAILY PO
     Route: 048
  15. SENOKOT [Concomitant]
  16. FOLIC ACID [Concomitant]

REACTIONS (4)
  - DEVICE OCCLUSION [None]
  - NEOPLASM PROGRESSION [None]
  - LUNG NEOPLASM MALIGNANT [None]
  - DYSPNOEA [None]
